FAERS Safety Report 8181121-7 (Version None)
Quarter: 2012Q1

REPORT INFORMATION
  Report Type: 
  Country: None (occurrence: None)
  Receive Date: 20120302
  Receipt Date: 20120223
  Transmission Date: 20120608
  Serious: Yes (Other)
  Sender: FDA-Public Use
  Company Number: US-BAYER-2011-022142

PATIENT
  Age: 25 Year
  Sex: Female
  Weight: 73 kg

DRUGS (4)
  1. RANITIDINE [Concomitant]
     Dosage: UNK
     Dates: start: 20080201
  2. YAZ [Suspect]
     Dosage: 1 DF, QD
     Route: 048
     Dates: start: 20080901, end: 20081001
  3. YAZ [Suspect]
     Indication: CONTRACEPTION
     Dosage: 1 DF, QD
     Dates: start: 20080201, end: 20080501
  4. CIPROFLOXACIN [Concomitant]
     Dosage: UNK
     Dates: start: 20080101

REACTIONS (13)
  - CHOLELITHIASIS [None]
  - PAIN [None]
  - ABDOMINAL DISTENSION [None]
  - EMOTIONAL DISTRESS [None]
  - DIARRHOEA [None]
  - ANXIETY [None]
  - DEPRESSION [None]
  - GALLBLADDER DISORDER [None]
  - DYSPEPSIA [None]
  - CONSTIPATION [None]
  - SCAR [None]
  - INJURY [None]
  - FLATULENCE [None]
